FAERS Safety Report 8505691-1 (Version None)
Quarter: 2012Q3

REPORT INFORMATION
  Report Type: 
  Country: None (occurrence: None)
  Receive Date: 20120712
  Receipt Date: 20120702
  Transmission Date: 20120928
  Serious: Yes (Life-Threatening, Hospitalization)
  Sender: FDA-Public Use
  Company Number: GB-NOVOPROD-355000

PATIENT
  Age: 74 Year
  Sex: Female

DRUGS (14)
  1. VICTOZA [Suspect]
     Indication: PRODUCT USED FOR UNKNOWN INDICATION
     Dosage: 1.2 MG, QD
     Route: 058
     Dates: start: 20120531
  2. ASPIRIN [Concomitant]
  3. BISOPROLOL FUMARATE [Concomitant]
  4. GLICLAZIDE [Concomitant]
  5. NITROFURANTOIN [Concomitant]
  6. EZETIMIBE [Concomitant]
  7. NITROGLYCERIN [Concomitant]
  8. OMEPRAZOLE [Concomitant]
  9. BETAHISTINE [Concomitant]
  10. VALSARTAN [Concomitant]
  11. ISOSORBIDE MONONITRATE [Concomitant]
  12. METFORMIN HCL [Concomitant]
  13. TRIMETHOPRIM [Concomitant]
  14. ATORVASTATIN [Concomitant]

REACTIONS (7)
  - PARAESTHESIA [None]
  - DYSARTHRIA [None]
  - CONFUSIONAL STATE [None]
  - MUSCULAR WEAKNESS [None]
  - DYSPHAGIA [None]
  - FEELING ABNORMAL [None]
  - TRANSIENT ISCHAEMIC ATTACK [None]
